FAERS Safety Report 8087869-7 (Version None)
Quarter: 2012Q1

REPORT INFORMATION
  Report Type: 
  Country: None (occurrence: None)
  Receive Date: 20120128
  Receipt Date: 20110503
  Transmission Date: 20120608
  Serious: No
  Sender: FDA-Public Use
  Company Number: US-ABBOTT-11P-163-0723159-00

PATIENT
  Sex: Female
  Weight: 95.34 kg

DRUGS (2)
  1. HUMIRA [Suspect]
     Indication: RHEUMATOID ARTHRITIS
     Dates: start: 20110413, end: 20110413
  2. HUMIRA [Suspect]
     Indication: HIDRADENITIS
     Dates: start: 20110401

REACTIONS (1)
  - MYALGIA [None]
